FAERS Safety Report 25281606 (Version 1)
Quarter: 2025Q2

REPORT INFORMATION
  Report Type: Spontaneous
  Country: CH (occurrence: CH)
  Receive Date: 20250508
  Receipt Date: 20250508
  Transmission Date: 20250717
  Serious: Yes (Hospitalization, Other)
  Sender: AZURITY PHARMACEUTICALS
  Company Number: CH-AZURITY PHARMACEUTICALS, INC.-AZR202504-001201

PATIENT
  Age: 46 Year
  Sex: Female

DRUGS (4)
  1. IVERMECTIN [Suspect]
     Active Substance: IVERMECTIN
     Indication: Acarodermatitis
  2. IVERMECTIN [Suspect]
     Active Substance: IVERMECTIN
  3. PREDNISONE [Concomitant]
     Active Substance: PREDNISONE
     Indication: Rash pustular
     Route: 065
  4. CLOBETASOL [Concomitant]
     Active Substance: CLOBETASOL
     Indication: Rash pustular
     Route: 065

REACTIONS (2)
  - Mazzotti reaction [Recovered/Resolved]
  - Polyarthritis [Recovered/Resolved]
